FAERS Safety Report 6311828-5 (Version None)
Quarter: 2009Q3

REPORT INFORMATION
  Report Type: 
  Country: None (occurrence: None)
  Receive Date: 20090817
  Receipt Date: 20090810
  Transmission Date: 20100115
  Serious: Yes (Other)
  Sender: FDA-Public Use
  Company Number: JP-JNJFOC-20090804183

PATIENT

DRUGS (5)
  1. DUROTEP MT [Suspect]
     Indication: METASTASES TO BONE
     Route: 062
  2. OPSO [Suspect]
     Indication: METASTASES TO BONE
     Route: 048
  3. LEPETAN [Concomitant]
     Route: 065
  4. BUPRENORPHINE HYDROCHLORIDE [Concomitant]
     Route: 065
  5. ZOLPIDEM TARTRATE [Concomitant]
     Route: 065

REACTIONS (3)
  - AGGRESSION [None]
  - DELUSION [None]
  - HALLUCINATION [None]
